FAERS Safety Report 18324099 (Version 1)
Quarter: 2020Q3

REPORT INFORMATION
  Report Type: Spontaneous
  Country: US (occurrence: US)
  Receive Date: 20200929
  Receipt Date: 20200929
  Transmission Date: 20201103
  Serious: Yes (Life-Threatening, Disabling)
  Sender: FDA-Public Use
  Company Number: None

PATIENT
  Age: 70 Year
  Sex: Male
  Weight: 140 kg

DRUGS (19)
  1. ASPIRIN EC [Concomitant]
     Active Substance: ASPIRIN
     Dates: start: 20200925, end: 20200928
  2. ENOXAPARIN [Concomitant]
     Active Substance: ENOXAPARIN
     Dates: start: 20200924, end: 20200929
  3. INSULIN (GLARGINE, LISPRO, AND SLIDING?SCALE REGULAR) [Concomitant]
     Dates: start: 20200924, end: 20200927
  4. LISINOPRIL. [Concomitant]
     Active Substance: LISINOPRIL
     Dates: start: 20200925, end: 20200926
  5. METFORMIN [Concomitant]
     Active Substance: METFORMIN HYDROCHLORIDE
     Dates: start: 20200924, end: 20200926
  6. POTASSIUM CHLORIDE ER  TABS [Concomitant]
     Dates: start: 20200924, end: 20200929
  7. HYDROCHLOROTHIAZIDE. [Concomitant]
     Active Substance: HYDROCHLOROTHIAZIDE
     Dates: start: 20200925, end: 20200926
  8. SODIUM CHLORIDE 0.9% IV DRIP [Concomitant]
     Dates: start: 20200923, end: 20200929
  9. ACTEMRA [Suspect]
     Active Substance: TOCILIZUMAB
     Indication: COVID-19
     Dosage: ?          OTHER FREQUENCY:ONCE;?
     Route: 041
     Dates: start: 20200925, end: 20200925
  10. ZINC SULFATE  (ORAL) [Concomitant]
     Dates: start: 20200924, end: 20200929
  11. ALBUTEROL INHALER [Concomitant]
     Active Substance: ALBUTEROL
     Dates: start: 20200924, end: 20200928
  12. GABAPENTIN. [Concomitant]
     Active Substance: GABAPENTIN
     Dates: start: 20200924, end: 20200929
  13. AMLODIPINE [Concomitant]
     Active Substance: AMLODIPINE BESYLATE
     Dates: start: 20200925, end: 20200926
  14. ASCORBIC ACID 1,500 MG Q6H IV [Concomitant]
     Dates: start: 20200924, end: 20200927
  15. ATORVASTATIN [Concomitant]
     Active Substance: ATORVASTATIN
     Dates: start: 20200925, end: 20200927
  16. DEXAMETHASONE NA PHOS [Concomitant]
     Dates: start: 20200925, end: 20200927
  17. MAGNESIUM OXIDE. [Concomitant]
     Active Substance: MAGNESIUM OXIDE
     Dates: start: 20200924, end: 20200926
  18. METOPROLOL. [Concomitant]
     Active Substance: METOPROLOL
     Dates: start: 20200924, end: 20200929
  19. REMDESIVIR. [Concomitant]
     Active Substance: REMDESIVIR
     Dates: start: 20200926, end: 20200927

REACTIONS (6)
  - Acute respiratory failure [None]
  - Sepsis [None]
  - Colectomy [None]
  - Ileostomy [None]
  - Large intestine perforation [None]
  - Pneumonia [None]

NARRATIVE: CASE EVENT DATE: 20200926
